FAERS Safety Report 8984258 (Version 1)
Quarter: 2012Q4

REPORT INFORMATION
  Report Type: 
  Country: NL (occurrence: NL)
  Receive Date: 20121226
  Receipt Date: 20121226
  Transmission Date: 20130627
  Serious: Yes (Hospitalization)
  Sender: FDA-Public Use
  Company Number: PHHY2012NL118447

PATIENT
  Sex: Female

DRUGS (3)
  1. ZOMETA [Suspect]
     Indication: BREAST CANCER METASTATIC
     Dosage: 4 mg, 1 every 28 days
     Route: 042
  2. ZOMETA [Suspect]
     Dosage: 4 mg, 1/28 days
     Route: 042
     Dates: start: 20110224
  3. ZOMETA [Suspect]
     Dosage: 4 mg, 1/28 days
     Route: 042
     Dates: start: 20121126

REACTIONS (2)
  - Fracture [Not Recovered/Not Resolved]
  - Pain [Not Recovered/Not Resolved]
